FAERS Safety Report 7368414-8 (Version None)
Quarter: 2011Q1

REPORT INFORMATION
  Report Type: 
  Country: None (occurrence: None)
  Receive Date: 20110311
  Receipt Date: 20110224
  Transmission Date: 20110831
  Serious: No
  Sender: FDA-Public Use
  Company Number: 2011MA001762

PATIENT
  Sex: Female

DRUGS (1)
  1. METOCLOPRAMIDE TABLETS, USP, 10 MG (PUREPAC) [Suspect]

REACTIONS (1)
  - TREMOR [None]
